FAERS Safety Report 12729717 (Version 4)
Quarter: 2016Q3

REPORT INFORMATION
  Report Type: Report from Study
  Country: DE (occurrence: DE)
  Receive Date: 20160909
  Receipt Date: 20160922
  Transmission Date: 20161109
  Serious: Yes (Other)
  Sender: FDA-Public Use
  Company Number: DE-TEVA-690624ROM

PATIENT
  Age: 56 Year
  Sex: Male
  Weight: 76.2 kg

DRUGS (3)
  1. THIOTEPA. [Suspect]
     Active Substance: THIOTEPA
     Dosage: 380 MILLIGRAM DAILY;
     Dates: start: 20160706, end: 20160708
  2. FLUDARABINE [Suspect]
     Active Substance: FLUDARABINE PHOSPHATE
     Dosage: 59 MILLIGRAM DAILY;
     Route: 042
     Dates: start: 20160706, end: 20160708
  3. TREOSULFAN [Suspect]
     Active Substance: TREOSULFAN
     Dosage: 23 GRAM DAILY;
     Dates: start: 20160709, end: 20160711

REACTIONS (1)
  - Hypernatraemia [Recovered/Resolved]

NARRATIVE: CASE EVENT DATE: 20160721
